FAERS Safety Report 8102777 (Version 3)
Quarter: 2014Q1

REPORT INFORMATION
  Report Type: Spontaneous
  Country: GB (occurrence: GB)
  Receive Date: 20110823
  Receipt Date: 20140228
  Transmission Date: 20141002
  Serious: Yes (Death, Hospitalization)
  Sender: FDA-Public Use
  Company Number: GB-CELGENEUS-167-50794-11082156

PATIENT
  Age: 61 Year
  Sex: Male

DRUGS (4)
  1. VIDAZA [Suspect]
     Indication: MYELODYSPLASTIC SYNDROME
     Dosage: 100 MILLIGRAM
     Route: 058
     Dates: start: 200906, end: 201107
  2. IMMUNOGLOBULIN [Concomitant]
     Indication: PROPHYLAXIS
     Route: 041
  3. CORTICOSTEROIDS [Concomitant]
     Indication: CHRONIC OBSTRUCTIVE PULMONARY DISEASE
     Route: 065
  4. IMMUNOGLOBULINS [Concomitant]
     Indication: PROPHYLAXIS
     Route: 065

REACTIONS (1)
  - Bronchopneumonia [Fatal]
